FAERS Safety Report 22340493 (Version 1)
Quarter: 2023Q2

REPORT INFORMATION
  Report Type: Spontaneous
  Country: US (occurrence: US)
  Receive Date: 20230518
  Receipt Date: 20230518
  Transmission Date: 20230722
  Serious: No
  Sender: FDA-Public Use
  Company Number: US-BRISTOL-MYERS SQUIBB COMPANY-2023-070174

PATIENT

DRUGS (1)
  1. REVLIMID [Suspect]
     Active Substance: LENALIDOMIDE
     Indication: Myelodysplastic syndrome
     Dosage: DOSE : 10 MG;     FREQ : 10MG DAILY

REACTIONS (4)
  - Diarrhoea [Recovered/Resolved]
  - Pain in jaw [Unknown]
  - Swelling face [Unknown]
  - Middle ear effusion [Unknown]
